FAERS Safety Report 8574773-0 (Version None)
Quarter: 2012Q3

REPORT INFORMATION
  Report Type: 
  Country: None (occurrence: None)
  Receive Date: 20120807
  Receipt Date: 20120703
  Transmission Date: 20120928
  Serious: Yes (Hospitalization)
  Sender: FDA-Public Use
  Company Number: US-009507513-2009SP042237

PATIENT
  Sex: Female
  Weight: 69.4 kg

DRUGS (9)
  1. NUVARING [Suspect]
     Indication: DYSMENORRHOEA
  2. NUVARING [Suspect]
     Indication: DYSFUNCTIONAL UTERINE BLEEDING
  3. NUVARING [Suspect]
     Indication: MENOMETRORRHAGIA
     Dosage: UNK UNK, QM
     Route: 067
     Dates: start: 20070912, end: 20080101
  4. CLARITIN [Concomitant]
     Indication: HYPERSENSITIVITY
     Dosage: EVERY OTHER DAY ON AND OFF SINCE 2005
     Dates: start: 20050101
  5. VITAMINS (UNSPECIFIED) [Concomitant]
     Dosage: UNK UNK, QD
     Route: 048
  6. PROTONIX [Concomitant]
     Dosage: DELAYED RELEASE
     Route: 048
  7. FERROUS SULFATE TAB [Concomitant]
     Dosage: SUSTAINED RELEASE
     Route: 048
  8. ASCORBIC ACID [Concomitant]
     Dosage: 500 MG, QD
     Route: 048
  9. LORAZEPAM [Concomitant]
     Dosage: 0.5 MG, UNK
     Route: 048

REACTIONS (11)
  - RHINITIS ALLERGIC [None]
  - DEEP VEIN THROMBOSIS [None]
  - OFF LABEL USE [None]
  - LYMPHADENOPATHY MEDIASTINAL [None]
  - BRONCHITIS [None]
  - HAEMATURIA [None]
  - NORMOCHROMIC NORMOCYTIC ANAEMIA [None]
  - VAGINITIS BACTERIAL [None]
  - TOOTH DISORDER [None]
  - BACK PAIN [None]
  - SARCOIDOSIS [None]
